FAERS Safety Report 9547075 (Version 1)
Quarter: 2013Q3

REPORT INFORMATION
  Report Type: Spontaneous
  Country: US (occurrence: None)
  Receive Date: 20130919
  Receipt Date: 20130919
  Transmission Date: 20140515
  Serious: Yes (Death)
  Sender: FDA-Public Use
  Company Number: ADR-2013UNK153

PATIENT
  Age: 28 Day
  Sex: 0

DRUGS (4)
  1. TENOFOVIR DISOPROXIL FUMARATE [Suspect]
     Indication: ACQUIRED IMMUNODEFICIENCY SYNDROME
     Route: 048
     Dates: start: 20120816
  2. PREZISTA [Concomitant]
  3. SELZENTRY, CELSENTR, MVC-150MG [Concomitant]
  4. EMTRIVA, FTC 200MG [Concomitant]

REACTIONS (3)
  - Pregnancy [None]
  - Maternal exposure during pregnancy [None]
  - Abortion spontaneous [None]
